FAERS Safety Report 11696817 (Version 2)
Quarter: 2016Q1

REPORT INFORMATION
  Report Type: Spontaneous
  Country: AR (occurrence: AR)
  Receive Date: 20151104
  Receipt Date: 20160323
  Transmission Date: 20160525
  Serious: Yes (Death, Hospitalization, Other)
  Sender: FDA-Public Use
  Company Number: AR-BRISTOL-MYERS SQUIBB COMPANY-BMS-2015-075795

PATIENT
  Age: 76 Year
  Sex: Male

DRUGS (1)
  1. ELIQUIS [Suspect]
     Active Substance: APIXABAN
     Indication: PRODUCT USED FOR UNKNOWN INDICATION
     Dosage: 5 MG, QD
     Route: 065

REACTIONS (6)
  - Renal failure [Unknown]
  - Cardiac arrest [Fatal]
  - Gastric ulcer [Unknown]
  - Haematochezia [Unknown]
  - Pneumonia [Unknown]
  - Cardiac failure [Unknown]

NARRATIVE: CASE EVENT DATE: 201510
